FAERS Safety Report 6259430-8 (Version None)
Quarter: 2009Q3

REPORT INFORMATION
  Report Type: 
  Country: None (occurrence: None)
  Receive Date: 20090708
  Receipt Date: 20071120
  Transmission Date: 20100115
  Serious: Yes (Other)
  Sender: FDA-Public Use
  Company Number: US-ASTRAZENECA-2006UW21168

PATIENT
  Age: 50 Year
  Sex: Male
  Weight: 90.7 kg

DRUGS (6)
  1. SEROQUEL [Suspect]
     Indication: SCHIZOPHRENIA
     Route: 048
     Dates: start: 20040101, end: 20060101
  2. SEROQUEL [Suspect]
     Indication: BIPOLAR DISORDER
     Route: 048
     Dates: start: 20040101, end: 20060101
  3. HALDOL [Concomitant]
     Dates: start: 19980101, end: 20070101
  4. ASPIRIN [Concomitant]
     Route: 048
     Dates: start: 20070507
  5. METFORMIN [Concomitant]
     Route: 048
     Dates: start: 20050525
  6. TRAZODONE HCL [Concomitant]
     Route: 048
     Dates: start: 20061011

REACTIONS (6)
  - DEPRESSION [None]
  - DIABETES MELLITUS [None]
  - DIABETIC KETOACIDOSIS [None]
  - DIABETIC RETINOPATHY [None]
  - OBESITY [None]
  - TYPE 2 DIABETES MELLITUS [None]
